FAERS Safety Report 4988853-X (Version None)
Quarter: 2006Q2

REPORT INFORMATION
  Report Type: 
  Country: None (occurrence: None)
  Receive Date: 20060502
  Receipt Date: 20051116
  Transmission Date: 20061013
  Serious: Yes (Hospitalization, Disabling)
  Sender: FDA-Public Use
  Company Number: US-MERCK-0511USA03040

PATIENT
  Age: 51 Year
  Sex: Male
  Weight: 100 kg

DRUGS (18)
  1. ZOLOFT [Concomitant]
     Route: 065
  2. ULTRACET [Concomitant]
     Route: 065
  3. MIRTAZAPINE [Concomitant]
     Route: 065
  4. ACETAMINOPHEN AND PROPOXYPHENE NAPSYLATE [Concomitant]
     Route: 065
  5. NEURONTIN [Concomitant]
     Route: 065
  6. NIASPAN [Concomitant]
     Route: 065
  7. ZOCOR [Concomitant]
     Route: 065
  8. ALTACE [Concomitant]
     Route: 065
  9. ISOSORBIDE MONONITRATE ER [Concomitant]
     Route: 065
  10. METOPROLOL [Concomitant]
     Route: 065
  11. LIPITOR [Concomitant]
     Route: 065
  12. TRICOR [Concomitant]
     Route: 065
  13. VIOXX [Suspect]
     Indication: BACK PAIN
     Route: 048
     Dates: start: 20020327, end: 20040801
  14. VIOXX [Suspect]
     Indication: SPINAL COLUMN STENOSIS
     Route: 048
     Dates: start: 20020327, end: 20040801
  15. AVANDIA [Concomitant]
     Route: 065
  16. ZOCOR [Concomitant]
     Route: 065
  17. BEXTRA [Concomitant]
     Route: 065
  18. SKELAXIN [Concomitant]
     Route: 065

REACTIONS (9)
  - ACUTE MYOCARDIAL INFARCTION [None]
  - BACK PAIN [None]
  - CHEST PAIN [None]
  - CORONARY ARTERY DISEASE [None]
  - CORONARY ARTERY STENOSIS [None]
  - DEPRESSION [None]
  - SINUS TACHYCARDIA [None]
  - SPINAL COLUMN STENOSIS [None]
  - SPINAL DISORDER [None]
